FAERS Safety Report 6773376-8 (Version None)
Quarter: 2010Q2

REPORT INFORMATION
  Report Type: 
  Country: None (occurrence: None)
  Receive Date: 20100614
  Receipt Date: 20100603
  Transmission Date: 20101027
  Serious: Yes (Hospitalization, Other)
  Sender: FDA-Public Use
  Company Number: 2009AC000106

PATIENT
  Age: 28 Year
  Sex: Male

DRUGS (61)
  1. DIGOXIN [Suspect]
     Dosage: .125 MG;QD; PO
     Route: 048
     Dates: end: 20080801
  2. DIGOXIN [Suspect]
     Dosage: .25 MG;QD; PO
     Route: 048
     Dates: start: 20080801
  3. DIGOXIN [Suspect]
     Dosage: 125 MG;QD; PO
     Route: 048
     Dates: start: 20040101
  4. DIGOXIN [Suspect]
     Dosage: ; PO
     Route: 048
     Dates: start: 20031001
  5. LIPITOR [Concomitant]
  6. CARVEDILOL [Concomitant]
  7. LASIX [Concomitant]
  8. INSULIN [Concomitant]
  9. METOLAZONE [Concomitant]
  10. PROMETHAZINE [Concomitant]
  11. HYDROCODONE [Concomitant]
  12. AZITHROMYCIN [Concomitant]
  13. LORTAB [Concomitant]
  14. PREDNISONE [Concomitant]
  15. PROTONIX [Concomitant]
  16. COUMADIN [Concomitant]
  17. ALDACTONE [Concomitant]
  18. DIOVAN [Concomitant]
  19. COREG [Concomitant]
  20. INSULIN [Concomitant]
  21. POTASSIUM [Concomitant]
  22. LISINOPRIL [Concomitant]
  23. URSODIOL [Concomitant]
  24. DOBUTAMINE HCL [Concomitant]
  25. MAGNESIUM [Concomitant]
  26. ACYCLOVIR [Concomitant]
  27. DIFLUCAN [Concomitant]
  28. ATIVAN [Concomitant]
  29. POTASSIUM [Concomitant]
  30. RELPAX [Concomitant]
  31. PHENERGAN [Concomitant]
  32. DILTIAZEM [Concomitant]
  33. BIDIL [Concomitant]
  34. VANCOMYCIN [Concomitant]
  35. UNASYN [Concomitant]
  36. DAPTOMYCIN [Concomitant]
  37. DILAUDID [Concomitant]
  38. MILRINONE [Concomitant]
  39. OXYGEN [Concomitant]
  40. LEVITRA [Concomitant]
  41. XANAX [Concomitant]
  42. POTASSIUM [Concomitant]
  43. QUININE [Concomitant]
  44. AMBIEM [Concomitant]
  45. TORADOL [Concomitant]
  46. TESSALON [Concomitant]
  47. SUMEX [Concomitant]
  48. LOVENOX [Concomitant]
  49. PEPCID [Concomitant]
  50. UROXATRAL [Concomitant]
  51. HYDRALAZINE HCL [Concomitant]
  52. AMIODARONE [Concomitant]
  53. NORVASC [Concomitant]
  54. COLASE [Concomitant]
  55. LEXAPRO [Concomitant]
  56. IRON [Concomitant]
  57. VIAGRA [Concomitant]
  58. PANTOPRAZOLE [Concomitant]
  59. ALFUZOSIN HCL [Concomitant]
  60. TIKOSYN [Concomitant]
  61. SPIRONOLACTONE [Concomitant]

REACTIONS (46)
  - ANHEDONIA [None]
  - ANXIETY [None]
  - ARTHRITIS [None]
  - ATRIAL FIBRILLATION [None]
  - BACK PAIN [None]
  - BLOOD GLUCOSE INCREASED [None]
  - BONE MARROW TRANSPLANT [None]
  - BRONCHITIS [None]
  - CARDIAC DISORDER [None]
  - CARDIAC FAILURE CONGESTIVE [None]
  - COAGULOPATHY [None]
  - CONDITION AGGRAVATED [None]
  - CONGESTIVE CARDIOMYOPATHY [None]
  - DECREASED APPETITE [None]
  - DEVICE RELATED INFECTION [None]
  - DIABETES MELLITUS [None]
  - DISCOMFORT [None]
  - DYSSTASIA [None]
  - ECONOMIC PROBLEM [None]
  - ENDOCARDITIS [None]
  - EPISTAXIS [None]
  - FALL [None]
  - GAIT DISTURBANCE [None]
  - HAEMOPTYSIS [None]
  - HEADACHE [None]
  - HYPERTENSION [None]
  - HYPOTENSION [None]
  - HYPOVOLAEMIA [None]
  - INJURY [None]
  - INSOMNIA [None]
  - JUGULAR VEIN THROMBOSIS [None]
  - MIGRAINE [None]
  - MUSCLE SPASMS [None]
  - MUSCULOSKELETAL STIFFNESS [None]
  - NAUSEA [None]
  - NECK PAIN [None]
  - OEDEMA PERIPHERAL [None]
  - OESOPHAGEAL CANDIDIASIS [None]
  - OLIGURIA [None]
  - PAIN [None]
  - PARAESTHESIA [None]
  - SEPSIS [None]
  - UNEVALUABLE EVENT [None]
  - UPPER RESPIRATORY TRACT INFECTION [None]
  - VISION BLURRED [None]
  - VOMITING [None]
